FAERS Safety Report 25619944 (Version 1)
Quarter: 2025Q3

REPORT INFORMATION
  Report Type: Spontaneous
  Country: GB (occurrence: GB)
  Receive Date: 20250730
  Receipt Date: 20250730
  Transmission Date: 20251021
  Serious: Yes (Death, Hospitalization, Other)
  Sender: ACCORD
  Company Number: None

PATIENT
  Age: 85 Year
  Sex: Male
  Weight: 79 kg

DRUGS (13)
  1. APIXABAN [Suspect]
     Active Substance: APIXABAN
     Indication: Atrial fibrillation
     Dates: end: 20250321
  2. AMLODIPINE [Concomitant]
     Active Substance: AMLODIPINE BESYLATE
  3. LISINOPRIL [Concomitant]
     Active Substance: LISINOPRIL
  4. DOXAZOSIN [Concomitant]
     Active Substance: DOXAZOSIN MESYLATE
  5. BRINZOLAMIDE [Concomitant]
     Active Substance: BRINZOLAMIDE
  6. METHOXY POLYETHYLENE GLYCOL-EPOETIN BETA [Concomitant]
     Active Substance: METHOXY POLYETHYLENE GLYCOL-EPOETIN BETA
  7. CHOLECALCIFEROL [Concomitant]
     Active Substance: CHOLECALCIFEROL
  8. FUROSEMIDE [Concomitant]
     Active Substance: FUROSEMIDE
  9. ATROPINE [Concomitant]
     Active Substance: ATROPINE
  10. PREDNISOLONE [Concomitant]
     Active Substance: PREDNISOLONE
  11. OCTAPLEX [Concomitant]
     Active Substance: COAGULATION FACTOR IX HUMAN\COAGULATION FACTOR VII HUMAN\COAGULATION FACTOR X HUMAN\PROTEIN C\PROTEI
  12. SODIUM BICARBONATE [Concomitant]
     Active Substance: SODIUM BICARBONATE
  13. TIMOLOL [Concomitant]
     Active Substance: TIMOLOL

REACTIONS (3)
  - Head injury [Unknown]
  - Subdural haematoma [Unknown]
  - Haematemesis [Fatal]

NARRATIVE: CASE EVENT DATE: 20250421
